FAERS Safety Report 6035610-1 (Version None)
Quarter: 2009Q1

REPORT INFORMATION
  Report Type: 
  Country: None (occurrence: None)
  Receive Date: 20090113
  Receipt Date: 20090105
  Transmission Date: 20090719
  Serious: Yes (Other)
  Sender: FDA-Public Use
  Company Number: PHHY2008DE32091

PATIENT
  Sex: Female

DRUGS (6)
  1. RASILEZ [Suspect]
     Indication: HYPERTENSION
     Dosage: 300 MG/DAY
     Dates: start: 20080829, end: 20080901
  2. CARMEN [Suspect]
     Indication: HYPERTENSION
     Dosage: 0.5 DF/DAY
     Route: 048
     Dates: start: 20080826, end: 20080828
  3. CARMEN [Suspect]
     Dosage: 1 DF
     Route: 048
     Dates: start: 20080829, end: 20081126
  4. KINZALMONO [Suspect]
     Indication: HYPERTENSION
     Dosage: 1 DF
     Route: 048
     Dates: start: 20080826, end: 20081126
  5. PRAVASTATIN [Suspect]
     Indication: HYPERLIPIDAEMIA
     Dosage: 20 MG
     Route: 048
     Dates: start: 20080829, end: 20081126
  6. BISOHEXAL [Concomitant]
     Indication: HYPERTENSION
     Dosage: 1-0-0 DF
     Route: 048

REACTIONS (7)
  - ALVEOLITIS [None]
  - BRONCHOALVEOLAR LAVAGE ABNORMAL [None]
  - COUGH [None]
  - DYSPNOEA [None]
  - LEUKOCYTOSIS [None]
  - LUNG INFILTRATION [None]
  - RED BLOOD CELL SEDIMENTATION RATE INCREASED [None]
